FAERS Safety Report 25331121 (Version 2)
Quarter: 2025Q2

REPORT INFORMATION
  Report Type: Spontaneous
  Country: US (occurrence: US)
  Receive Date: 20250519
  Receipt Date: 20250614
  Transmission Date: 20250717
  Serious: No
  Sender: MERCK SHARP & DOHME LLC
  Company Number: US-009507513-2279275

PATIENT

DRUGS (1)
  1. KEYTRUDA [Suspect]
     Active Substance: PEMBROLIZUMAB

REACTIONS (4)
  - Product with quality issue administered [Unknown]
  - Product container issue [Unknown]
  - No adverse event [Unknown]
  - Product leakage [Unknown]

NARRATIVE: CASE EVENT DATE: 20250417
